FAERS Safety Report 8919906 (Version 2)
Quarter: 2013Q3

REPORT INFORMATION
  Report Type: Spontaneous
  Country: US (occurrence: US)
  Receive Date: 20121121
  Receipt Date: 20130801
  Transmission Date: 20140515
  Serious: Yes (Other)
  Sender: FDA-Public Use
  Company Number: US-009507513-1211USA006318

PATIENT
  Age: 30 Year
  Sex: Female
  Weight: 97.51 kg

DRUGS (1)
  1. NUVARING [Suspect]
     Indication: CONTRACEPTION
     Dosage: 3 WEEK RING, RING/MONTH
     Route: 067
     Dates: start: 20110309, end: 20130201

REACTIONS (7)
  - Device expulsion [Recovered/Resolved]
  - Device expulsion [Unknown]
  - Mood swings [Recovering/Resolving]
  - Muscle spasms [Recovering/Resolving]
  - Headache [Recovering/Resolving]
  - Vomiting [Recovered/Resolved]
  - Product shape issue [Unknown]
